FAERS Safety Report 6169228-7 (Version None)
Quarter: 2009Q2

REPORT INFORMATION
  Report Type: 
  Country: None (occurrence: None)
  Receive Date: 20090424
  Receipt Date: 20090416
  Transmission Date: 20091009
  Serious: Yes (Other)
  Sender: FDA-Public Use
  Company Number: CHPA2009US09718

PATIENT
  Age: 69 Year
  Sex: Male
  Weight: 79.4 kg

DRUGS (2)
  1. DOAN'S EXTRA STRENGTH PILLS (NCH) (MAGNESIUM SALICYLATE) TABLET [Suspect]
     Indication: CEREBROVASCULAR ACCIDENT PROPHYLAXIS
     Dosage: 1/4 CAPLET, QOD, ORAL
     Route: 048
     Dates: start: 20070101
  2. DOAN'S EXTRA STRENGTH PILLS (NCH) (MAGNESIUM SALICYLATE) TABLET [Suspect]
     Indication: ISCHAEMIC HEART DISEASE PROPHYLAXIS
     Dosage: 1/4 CAPLET, QOD, ORAL
     Route: 048
     Dates: start: 20070101

REACTIONS (3)
  - INCORRECT DOSE ADMINISTERED [None]
  - OFF LABEL USE [None]
  - PARKINSON'S DISEASE [None]
